FAERS Safety Report 5083021-8 (Version None)
Quarter: 2006Q3

REPORT INFORMATION
  Report Type: 
  Country: None (occurrence: None)
  Receive Date: 20060814
  Receipt Date: 20060803
  Transmission Date: 20061208
  Serious: Yes (Death)
  Sender: FDA-Public Use
  Company Number: 14538

PATIENT
  Age: 21 Year
  Sex: Male

DRUGS (3)
  1. BLEOMYCIN [Suspect]
     Indication: TESTIS CANCER
     Dosage: 30 UNITS PER_CYCLE
  2. ETOPOSIDE [Suspect]
     Indication: TESTIS CANCER
     Dosage: 175 MG PER_CYCLE
  3. CISPLATIN [Suspect]
     Indication: TESTIS CANCER
     Dosage: 35 MG PER_CYCLE

REACTIONS (4)
  - ACUTE PROMYELOCYTIC LEUKAEMIA [None]
  - CEREBRAL HAEMORRHAGE [None]
  - COMA [None]
  - DISSEMINATED INTRAVASCULAR COAGULATION [None]
